FAERS Safety Report 24375287 (Version 1)
Quarter: 2024Q3

REPORT INFORMATION
  Report Type: Spontaneous
  Country: PL (occurrence: PL)
  Receive Date: 20240928
  Receipt Date: 20240928
  Transmission Date: 20241017
  Serious: Yes (Life-Threatening, Other)
  Sender: AUROBINDO
  Company Number: PL-URPL-1-4231-2020

PATIENT
  Age: 42 Year
  Sex: Male
  Weight: 98 kg

DRUGS (3)
  1. ZOLPIDEM [Suspect]
     Active Substance: ZOLPIDEM TARTRATE
     Indication: Product used for unknown indication
     Dosage: 20 DOSAGE FORM
     Route: 048
  2. TRAMADOL [Suspect]
     Active Substance: TRAMADOL
     Indication: Product used for unknown indication
     Dosage: DOSE UNKNOWN
     Route: 048
  3. DEXKETOPROFEN [Suspect]
     Active Substance: DEXKETOPROFEN
     Indication: Product used for unknown indication
     Dosage: DOSE UNKNOWN
     Route: 048

REACTIONS (5)
  - Dysarthria [Recovered/Resolved]
  - Psychomotor retardation [Recovered/Resolved]
  - Somnolence [Recovered/Resolved]
  - Suicide attempt [Recovered/Resolved]
  - Balance disorder [Recovered/Resolved]

NARRATIVE: CASE EVENT DATE: 20201117
